FAERS Safety Report 6066052-0 (Version None)
Quarter: 2009Q1

REPORT INFORMATION
  Report Type: 
  Country: None (occurrence: None)
  Receive Date: 20090130
  Receipt Date: 20090115
  Transmission Date: 20090719
  Serious: No
  Sender: FDA-Public Use
  Company Number: 000#5#2006-00332

PATIENT
  Age: 66 Year
  Sex: Male
  Weight: 79 kg

DRUGS (1)
  1. ROTIGOTINE (ROTIGOTINE) (LOT#S:  071005090001) [Suspect]
     Indication: RESTLESS LEGS SYNDROME
     Dosage: TRANSDERMAL PATCH, DAILY DOSE:4, TRANSDERMAL; MILLIGRAM/24HOURS;UNIT DOSE:4 MILLIGRAM/24HOURS
     Route: 062
     Dates: start: 20031022

REACTIONS (1)
  - SLEEP ATTACKS [None]
